FAERS Safety Report 4770915-3 (Version None)
Quarter: 2005Q3

REPORT INFORMATION
  Report Type: 
  Country: None (occurrence: None)
  Receive Date: 20050914
  Receipt Date: 20050826
  Transmission Date: 20060218
  Serious: Yes (Death, Other)
  Sender: FDA-Public Use
  Company Number: JP_050807439

PATIENT
  Age: 57 Year
  Sex: Female
  Weight: 64 kg

DRUGS (7)
  1. GEMZAR [Suspect]
     Indication: OVARIAN CANCER
     Dosage: 1670 MG OTHER
     Dates: start: 20050801, end: 20050816
  2. WARFARIN SODIUM [Concomitant]
  3. METHYCOBAL (MECOBALAMIN) [Concomitant]
  4. ADALAT [Concomitant]
  5. MAGNESIUM OXIDE [Concomitant]
  6. DAIKENTYUTO [Concomitant]
  7. JUZENTAIHOTO [Concomitant]

REACTIONS (2)
  - CARDIO-RESPIRATORY ARREST [None]
  - PLEURAL EFFUSION [None]
